FAERS Safety Report 17301447 (Version 1)
Quarter: 2020Q1

REPORT INFORMATION
  Report Type: Spontaneous
  Country: RU (occurrence: RU)
  Receive Date: 20200122
  Receipt Date: 20200122
  Transmission Date: 20200409
  Serious: Yes (Hospitalization)
  Sender: FDA-Public Use
  Company Number: RU-PFIZER INC-2020026254

PATIENT
  Sex: Female

DRUGS (1)
  1. DOSTINEX [Suspect]
     Active Substance: CABERGOLINE
     Indication: LACTATION INHIBITION THERAPY
     Dosage: UNK

REACTIONS (2)
  - Body temperature increased [Unknown]
  - Drug ineffective [Unknown]
